FAERS Safety Report 8235807-6 (Version None)
Quarter: 2012Q1

REPORT INFORMATION
  Report Type: 
  Country: None (occurrence: None)
  Receive Date: 20120326
  Receipt Date: 20120315
  Transmission Date: 20120608
  Serious: Yes (Other)
  Sender: FDA-Public Use
  Company Number: US-US-EMD SERONO, INC.-7121473

PATIENT
  Sex: Male
  Weight: 23 kg

DRUGS (1)
  1. SAIZEN [Suspect]
     Indication: HYPOPITUITARISM
     Dates: start: 20091221, end: 20110126

REACTIONS (1)
  - MENINGIOMA [None]
